FAERS Safety Report 5414885-3 (Version None)
Quarter: 2007Q3

REPORT INFORMATION
  Report Type: 
  Country: None (occurrence: None)
  Receive Date: 20070815
  Receipt Date: 20060821
  Transmission Date: 20080115
  Serious: No
  Sender: FDA-Public Use
  Company Number: US-KINGPHARMUSA00001-K200601074

PATIENT

DRUGS (2)
  1. SEPTRA [Suspect]
  2. REBIF [Concomitant]

REACTIONS (3)
  - ERYTHEMA [None]
  - LOCAL SWELLING [None]
  - SKIN REACTION [None]
